FAERS Safety Report 11006646 (Version 1)
Quarter: 2015Q2

REPORT INFORMATION
  Report Type: Spontaneous
  Country: US (occurrence: US)
  Receive Date: 20150409
  Receipt Date: 20150409
  Transmission Date: 20150821
  Serious: No
  Sender: FDA-Public Use
  Company Number: US-ALLERGAN-1422513US

PATIENT
  Age: 34 Year
  Sex: Female

DRUGS (2)
  1. LATISSE [Suspect]
     Active Substance: BIMATOPROST
     Indication: GROWTH OF EYELASHES
     Dosage: 2 GTT, SINGLE
     Dates: start: 20141021, end: 20141021
  2. SPIRONOLACTONE. [Concomitant]
     Active Substance: SPIRONOLACTONE
     Dosage: UNK UNK, QHS
     Route: 048

REACTIONS (6)
  - Eyelid irritation [Recovered/Resolved]
  - Drug administered at inappropriate site [Unknown]
  - Eye pruritus [Unknown]
  - Eyelids pruritus [Recovered/Resolved]
  - Eye irritation [Recovered/Resolved]
  - Abnormal sensation in eye [Recovered/Resolved]

NARRATIVE: CASE EVENT DATE: 20141022
